FAERS Safety Report 7672692-5 (Version None)
Quarter: 2011Q3

REPORT INFORMATION
  Report Type: 
  Country: None (occurrence: None)
  Receive Date: 20110809
  Receipt Date: 20110802
  Transmission Date: 20111222
  Serious: Yes (Other)
  Sender: FDA-Public Use
  Company Number: PHHY2011PT66509

PATIENT
  Sex: Male

DRUGS (2)
  1. AMOXICILLIN AND CLAVULANATE POTASSIUM [Suspect]
     Indication: UPPER RESPIRATORY TRACT INFECTION
     Dosage: 1 DF, BID
     Route: 065
     Dates: start: 20110720, end: 20110720
  2. IBUPROFEN [Concomitant]

REACTIONS (8)
  - RASH [None]
  - ERYTHEMA [None]
  - OEDEMA PERIPHERAL [None]
  - COUGH [None]
  - BURNING SENSATION [None]
  - SWELLING [None]
  - DYSPNOEA [None]
  - MALAISE [None]
